FAERS Safety Report 7072163-3 (Version None)
Quarter: 2010Q4

REPORT INFORMATION
  Report Type: 
  Country: None (occurrence: None)
  Receive Date: 20101029
  Receipt Date: 20100426
  Transmission Date: 20110411
  Serious: No
  Sender: FDA-Public Use
  Company Number: A0834780A

PATIENT
  Age: 81 Year
  Sex: Male

DRUGS (11)
  1. ADVAIR DISKUS 100/50 [Suspect]
     Indication: CHRONIC OBSTRUCTIVE PULMONARY DISEASE
     Dosage: 1PUFF TWICE PER DAY
     Route: 055
     Dates: start: 20080917, end: 20081201
  2. LEUPROLIDE ACETATE [Concomitant]
  3. BLOOD PRESSURE MEDICATION [Concomitant]
  4. ANTI-CHOLESTEROL MEDICATION [Concomitant]
  5. PLAVIX [Concomitant]
     Dosage: 75MG PER DAY
     Route: 048
  6. CRESTOR [Concomitant]
     Dosage: 10MG PER DAY
     Route: 048
  7. SYNTHROID [Concomitant]
     Route: 048
  8. TOPROL-XL [Concomitant]
     Dosage: 50MG PER DAY
     Route: 048
  9. SYMBICORT [Concomitant]
     Route: 065
     Dates: start: 20090520
  10. ASPIRIN [Concomitant]
     Dosage: 81MG PER DAY
     Route: 048
  11. MULTI-VITAMIN [Concomitant]
     Route: 048

REACTIONS (2)
  - DIZZINESS [None]
  - MIDDLE INSOMNIA [None]
